FAERS Safety Report 19527375 (Version 2)
Quarter: 2021Q3

REPORT INFORMATION
  Report Type: Report from Study
  Country: IN (occurrence: IN)
  Receive Date: 20210713
  Receipt Date: 20210719
  Transmission Date: 20211014
  Serious: Yes (Death)
  Sender: FDA-Public Use
  Company Number: IN-BRISTOL-MYERS SQUIBB COMPANY-BMS-2021-067479

PATIENT
  Age: 69 Year
  Sex: Female
  Weight: 66.6 kg

DRUGS (1)
  1. NIVOLUMAB [Suspect]
     Active Substance: NIVOLUMAB
     Indication: SQUAMOUS CELL CARCINOMA OF LUNG
     Dosage: 192 MILLIGRAM, Q2WK
     Route: 042
     Dates: start: 20181003

REACTIONS (2)
  - COVID-19 [Fatal]
  - Prescribed underdose [Unknown]
